FAERS Safety Report 18172606 (Version 10)
Quarter: 2021Q3

REPORT INFORMATION
  Report Type: Report from Study
  Country: US (occurrence: US)
  Receive Date: 20200820
  Receipt Date: 20210805
  Transmission Date: 20211014
  Serious: Yes (Hospitalization, Other)
  Sender: FDA-Public Use
  Company Number: US-B.I. PHARMACEUTICALS,INC./RIDGEFIELD-2020-US-042991

PATIENT
  Age: 83 Year
  Sex: Female

DRUGS (4)
  1. OFEV [Suspect]
     Active Substance: NINTEDANIB
     Route: 048
     Dates: start: 20200919, end: 20210325
  2. OFEV [Suspect]
     Active Substance: NINTEDANIB
     Route: 048
  3. OFEV [Suspect]
     Active Substance: NINTEDANIB
     Route: 048
     Dates: start: 20210416, end: 20210714
  4. OFEV [Suspect]
     Active Substance: NINTEDANIB
     Indication: IDIOPATHIC PULMONARY FIBROSIS
     Dosage: 150MG BID
     Route: 048
     Dates: start: 20200814, end: 20200918

REACTIONS (28)
  - Fall [Unknown]
  - Sinus disorder [Not Recovered/Not Resolved]
  - Headache [Not Recovered/Not Resolved]
  - Productive cough [Not Recovered/Not Resolved]
  - Cerebral haematoma [Unknown]
  - Sputum discoloured [Not Recovered/Not Resolved]
  - Arthralgia [Unknown]
  - Nausea [Not Recovered/Not Resolved]
  - Decreased appetite [Not Recovered/Not Resolved]
  - Liver function test increased [Recovered/Resolved]
  - Decreased appetite [Unknown]
  - Hepatic enzyme abnormal [Not Recovered/Not Resolved]
  - Asthenia [Unknown]
  - Headache [Recovered/Resolved]
  - Dyspepsia [Recovered/Resolved]
  - Insomnia [Unknown]
  - Wrist fracture [Recovered/Resolved]
  - Nausea [Recovered/Resolved]
  - Diarrhoea [Not Recovered/Not Resolved]
  - Vomiting [Not Recovered/Not Resolved]
  - Asthma [Unknown]
  - Headache [Recovered/Resolved]
  - Head injury [Unknown]
  - Nausea [Not Recovered/Not Resolved]
  - Carpal tunnel syndrome [Recovered/Resolved]
  - Haemorrhage [Recovered/Resolved]
  - Dyspepsia [Not Recovered/Not Resolved]
  - Constipation [Unknown]

NARRATIVE: CASE EVENT DATE: 20200818
